FAERS Safety Report 9608523 (Version 3)
Quarter: 2015Q1

REPORT INFORMATION
  Report Type: Report from Study
  Country: DE (occurrence: DE)
  Receive Date: 20131009
  Receipt Date: 20150116
  Transmission Date: 20150721
  Serious: Yes (Death, Life-Threatening, Hospitalization, Disabling)
  Sender: FDA-Public Use
  Company Number: DE-ROCHE-771801

PATIENT
  Age: 56 Year
  Sex: Male
  Weight: 78 kg

DRUGS (20)
  1. LORAZEPAM. [Concomitant]
     Active Substance: LORAZEPAM
     Route: 065
     Dates: start: 20100910, end: 20110418
  2. SOBELIN (GERMANY) [Concomitant]
     Dosage: DRUG REPORTED AS GLINDAMYCIN/SOBELIN
     Route: 065
     Dates: start: 20100919, end: 20100926
  3. DEXAMETHASONE. [Concomitant]
     Active Substance: DEXAMETHASONE
     Route: 065
     Dates: start: 20110429, end: 20110526
  4. LEVETIRACETAM. [Suspect]
     Active Substance: LEVETIRACETAM
     Indication: PRODUCT USED FOR UNKNOWN INDICATION
     Route: 065
  5. DEXAMETHASONE. [Concomitant]
     Active Substance: DEXAMETHASONE
     Route: 065
     Dates: start: 20100821, end: 20100822
  6. HYPERICUM PERFORATUM [Concomitant]
     Active Substance: HYPERICUM PERFORATUM
     Dosage: DOSE REPORTED AS: 0-0-1
     Route: 065
  7. BAYOTENSIN [Concomitant]
     Route: 065
     Dates: start: 20110302, end: 20110302
  8. ONDANSETRON [Concomitant]
     Active Substance: ONDANSETRON
     Route: 065
     Dates: start: 20110316, end: 20110418
  9. DEXAMETHASONE. [Concomitant]
     Active Substance: DEXAMETHASONE
     Route: 065
     Dates: start: 20101213, end: 20110105
  10. IRINOTECAN [Suspect]
     Active Substance: IRINOTECAN
     Indication: GLIOBLASTOMA
     Dosage: LAST DOSE PRIOR TO SAE ON 12/APR/2011
     Route: 042
  11. BEVACIZUMAB [Suspect]
     Active Substance: BEVACIZUMAB
     Indication: GLIOBLASTOMA
     Dosage: LAST DOSE PRIOR TO SAE ON 12/APR/2011
     Route: 042
  12. PANTOPRAZOLE [Concomitant]
     Active Substance: PANTOPRAZOLE SODIUM
     Dosage: DOSE REPORTED AS: 0-0-1
     Route: 065
     Dates: start: 20100820, end: 20100907
  13. FRAXIPARIN [Concomitant]
     Active Substance: NADROPARIN CALCIUM
     Route: 065
     Dates: start: 20100820, end: 20100907
  14. DEXAMETHASONE. [Concomitant]
     Active Substance: DEXAMETHASONE
     Route: 065
     Dates: start: 20100820, end: 20100820
  15. DEXAMETHASONE. [Concomitant]
     Active Substance: DEXAMETHASONE
     Route: 065
     Dates: start: 20110413, end: 20110428
  16. DEXAMETHASONE. [Concomitant]
     Active Substance: DEXAMETHASONE
     Route: 065
     Dates: start: 20100823, end: 20100824
  17. FORTECORTIN [Concomitant]
     Active Substance: DEXAMETHASONE
     Dosage: DOSE REPORTED AS: 1-1-1
     Route: 065
  18. FORTECORTIN [Concomitant]
     Active Substance: DEXAMETHASONE
     Route: 065
  19. FORTECORTIN [Concomitant]
     Active Substance: DEXAMETHASONE
     Route: 065
  20. TEMOZOLOMIDE. [Suspect]
     Active Substance: TEMOZOLOMIDE
     Indication: GLIOBLASTOMA
     Dosage: DATE OF LAST DOSE PRIOR TO SAE 24 OCT 2010
     Route: 048

REACTIONS (2)
  - General physical health deterioration [Fatal]
  - Neurological decompensation [Recovered/Resolved with Sequelae]

NARRATIVE: CASE EVENT DATE: 20110413
